FAERS Safety Report 16643142 (Version 1)
Quarter: 2019Q3

REPORT INFORMATION
  Report Type: Spontaneous
  Country: US (occurrence: US)
  Receive Date: 20190729
  Receipt Date: 20190729
  Transmission Date: 20191004
  Serious: No
  Sender: FDA-Public Use
  Company Number: US-PFIZER INC-2019319641

PATIENT
  Age: 85 Year
  Sex: Female

DRUGS (1)
  1. ADVIL [Suspect]
     Active Substance: IBUPROFEN
     Indication: ARTHRITIS
     Dosage: UNK (AROUND THE CLOCK AND RECENTLY PROBABLY ONLY TAKES IT ONCE OR TWICE A DAY)

REACTIONS (1)
  - Cardiac disorder [Unknown]
